FAERS Safety Report 7023385-9 (Version None)
Quarter: 2010Q3

REPORT INFORMATION
  Report Type: 
  Country: None (occurrence: None)
  Receive Date: 20100930
  Receipt Date: 20100928
  Transmission Date: 20110219
  Serious: Yes (Other)
  Sender: FDA-Public Use
  Company Number: CA-WYE-G06736810

PATIENT
  Age: 48 Year
  Sex: Female

DRUGS (3)
  1. PRISTIQ [Suspect]
     Route: 048
     Dates: start: 20100501
  2. MIRTAZAPINE [Concomitant]
     Dosage: UNKNOWN
  3. ZOPICLONE [Concomitant]
     Dosage: UNKNOWN

REACTIONS (2)
  - BLINDNESS TRANSIENT [None]
  - HYPOAESTHESIA FACIAL [None]
